FAERS Safety Report 9731278 (Version 1)
Quarter: 2013Q4

REPORT INFORMATION
  Report Type: Spontaneous
  Country: BR (occurrence: BR)
  Receive Date: 20131203
  Receipt Date: 20131203
  Transmission Date: 20140711
  Serious: Yes (Other)
  Sender: FDA-Public Use
  Company Number: BR-PFIZER INC-2013341635

PATIENT
  Age: 69 Year
  Sex: Male
  Weight: 86 kg

DRUGS (1)
  1. XALATAN [Suspect]
     Indication: GLAUCOMA
     Dosage: 1 DROP IN EACH EYE (3 UG), 1X/DAY
     Route: 047
     Dates: start: 20080614

REACTIONS (1)
  - Osteoarthritis [Unknown]
